FAERS Safety Report 8930260 (Version 1)
Quarter: 2012Q4

REPORT INFORMATION
  Report Type: Report from Study
  Country: US (occurrence: US)
  Receive Date: 20121128
  Receipt Date: 20121128
  Transmission Date: 20130627
  Serious: Yes (Hospitalization)
  Sender: FDA-Public Use
  Company Number: US-GLAXOSMITHKLINE-A0811426A

PATIENT
  Age: 52 Year
  Sex: Female
  Weight: 84.8 kg

DRUGS (9)
  1. FONDAPARINUX SODIUM [Suspect]
     Indication: PULMONARY EMBOLISM
     Route: 058
     Dates: start: 20090916, end: 20090922
  2. BEVACIZUMAB [Concomitant]
     Indication: LUNG NEOPLASM MALIGNANT
     Dosage: 15MGK Every 3 weeks
     Route: 042
     Dates: start: 20090807, end: 20090828
  3. SYNTHROID [Concomitant]
     Dosage: 150MG Per day
  4. FOLIC ACID [Concomitant]
  5. DESMOPRESSIN [Concomitant]
     Dosage: 2MG Per day
  6. DECADRON [Concomitant]
     Dosage: 2TAB Per day
  7. PALONOSETRON [Concomitant]
     Dosage: .25MG Per day
     Route: 042
  8. APREPITANT [Concomitant]
     Dosage: 125MG Per day
     Route: 048
  9. DEXAMETHASONE [Concomitant]
     Dosage: 12MG Per day
     Route: 048

REACTIONS (2)
  - Haematoma [Recovering/Resolving]
  - Abdominal pain [Recovering/Resolving]
